FAERS Safety Report 5345435-8 (Version None)
Quarter: 2007Q2

REPORT INFORMATION
  Report Type: 
  Country: None (occurrence: None)
  Receive Date: 20070531
  Receipt Date: 20070516
  Transmission Date: 20071010
  Serious: Yes (Hospitalization, Other)
  Sender: FDA-Public Use
  Company Number: 2007US001145

PATIENT
  Age: 56 Year
  Sex: Female

DRUGS (16)
  1. PROGRAF [Suspect]
     Indication: KIDNEY TRANSPLANT REJECTION
     Dosage: 5 MG, UID/QD, ORAL
     Route: 048
     Dates: start: 20040819
  2. MYCOPHENOLATE MOFETIL [Suspect]
     Indication: KIDNEY TRANSPLANT REJECTION
     Dosage: 1000 MG, BID, ORAL
     Route: 048
     Dates: start: 20040818
  3. PREDNISONE TAB [Suspect]
     Indication: KIDNEY TRANSPLANT REJECTION
     Dosage: 30 MG, UID/QD, ORAL
     Route: 048
     Dates: start: 20040823
  4. ACYCLOVIR [Concomitant]
  5. SULPHAMETHOXAZOLE (SULFAMETHOXAZOLE) [Concomitant]
  6. CLONIDINE [Concomitant]
  7. PREVACID [Concomitant]
  8. REGLAN [Concomitant]
  9. LIPITOR [Concomitant]
  10. K-PHOS (POTASSIUM PHOSPHATE MONOBASIC) [Concomitant]
  11. CALCIUM MAGNESIUM (MAGNESIUM, CALCIUM) [Concomitant]
  12. MULTIVITAMIN [Concomitant]
  13. NIFEREX (POLYSACCHARIDE-IRON COMPLEX) [Concomitant]
  14. DOSS (DOCUSATE SODIUM) [Concomitant]
  15. DIOVAN [Concomitant]
  16. SLOW-MAG (MAGNESIUM CHLORIDE ANHYDROUS) [Concomitant]

REACTIONS (3)
  - NEPHRECTOMY [None]
  - NEUTROPHIL PERCENTAGE INCREASED [None]
  - URINARY TRACT INFECTION [None]
